FAERS Safety Report 6483183-1 (Version None)
Quarter: 2009Q4

REPORT INFORMATION
  Report Type: 
  Country: None (occurrence: None)
  Receive Date: 20091123
  Receipt Date: 20090807
  Transmission Date: 20100525
  Serious: No
  Sender: FDA-Public Use
  Company Number: 8050185

PATIENT
  Age: 25 Year
  Sex: Female
  Weight: 70.3 kg

DRUGS (4)
  1. CIMZIA [Suspect]
     Indication: CROHN'S DISEASE
     Dosage: 400 MG SC
     Route: 058
     Dates: start: 20090806
  2. AZATHIOPRINE [Concomitant]
  3. LIALDA [Concomitant]
  4. LOESTRIN 1.5/30 [Concomitant]

REACTIONS (1)
  - PHARYNGEAL OEDEMA [None]
